FAERS Safety Report 13292843 (Version 3)
Quarter: 2017Q2

REPORT INFORMATION
  Report Type: Spontaneous
  Country: JP (occurrence: JP)
  Receive Date: 20170303
  Receipt Date: 20170518
  Transmission Date: 20170830
  Serious: Yes (Other)
  Sender: FDA-Public Use
  Company Number: JP-PFIZER INC-2017092383

PATIENT
  Age: 73 Year
  Sex: Male
  Weight: 76 kg

DRUGS (10)
  1. VALSARTAN SAND [Concomitant]
     Indication: HYPERTENSION
     Dosage: 40 MG, DAILY
     Dates: start: 20170221
  2. AMLODIPINE BESILATE ASUKA [Suspect]
     Active Substance: AMLODIPINE BESYLATE
     Indication: HYPERTENSION
     Dosage: 5 MG, DAILY
     Route: 048
     Dates: start: 20170221, end: 20170301
  3. SENNOSIDE [Concomitant]
     Active Substance: SENNOSIDES
     Indication: CONSTIPATION
     Dosage: 24 MG, DAILY
     Dates: start: 20170221
  4. PL [Concomitant]
     Active Substance: ACETAMINOPHEN\CAFFEINE\PROMETHAZINE\SALICYLAMIDE
     Indication: VIRAL UPPER RESPIRATORY TRACT INFECTION
     Dosage: 3 G, DAILY
     Dates: start: 20170221
  5. LANSOPRAZOLE OD [Concomitant]
     Active Substance: LANSOPRAZOLE
     Indication: PEPTIC ULCER
     Dosage: 15 MG, DAILY
     Dates: start: 20170221
  6. TRANEXAMIC ACID. [Concomitant]
     Active Substance: TRANEXAMIC ACID
     Dosage: 750 MG, DAILY
     Dates: start: 20170221
  7. PITAVASTATIN CALCIUM SAND [Concomitant]
     Indication: HYPERLIPIDAEMIA
     Dosage: 1 MG, DAILY
     Dates: start: 20170221
  8. LYRICA [Suspect]
     Active Substance: PREGABALIN
     Indication: SCIATICA
     Dosage: 150 MG, 2X/DAY
     Route: 048
     Dates: start: 20151006
  9. FUROSEMIDE TOWA [Concomitant]
     Indication: DIURETIC THERAPY
     Dosage: 40 MG, DAILY
     Dates: start: 20170221, end: 20170307
  10. SPIRONOLACTONE. [Suspect]
     Active Substance: SPIRONOLACTONE
     Indication: OEDEMA
     Dosage: 25 MG, DAILY
     Route: 048
     Dates: start: 20160524, end: 20170220

REACTIONS (10)
  - Nipple pain [Unknown]
  - Blood pressure decreased [Recovered/Resolved]
  - Chest pain [Recovered/Resolved]
  - Muscle spasms [Unknown]
  - Viral upper respiratory tract infection [Unknown]
  - Blood creatinine increased [Unknown]
  - Creatinine renal clearance decreased [Unknown]
  - Urticaria [Unknown]
  - Decreased appetite [Unknown]
  - Asthenia [Unknown]

NARRATIVE: CASE EVENT DATE: 20161014
